FAERS Safety Report 9419738 (Version 3)
Quarter: 2013Q3

REPORT INFORMATION
  Report Type: Spontaneous
  Country: US (occurrence: US)
  Receive Date: 20130725
  Receipt Date: 20130904
  Transmission Date: 20140515
  Serious: Yes (Death)
  Sender: FDA-Public Use
  Company Number: US-009507513-1307USA008994

PATIENT
  Age: 51 Year
  Sex: Male

DRUGS (1)
  1. TEMODAR [Suspect]
     Dosage: 460 MG, QD
     Route: 048
     Dates: start: 201303, end: 201305

REACTIONS (1)
  - Death [Fatal]
